FAERS Safety Report 9753801 (Version 1)
Quarter: 2013Q4

REPORT INFORMATION
  Report Type: Spontaneous
  Country: US (occurrence: US)
  Receive Date: 20131213
  Receipt Date: 20131213
  Transmission Date: 20140711
  Serious: No
  Sender: FDA-Public Use
  Company Number: US-GILEAD-2010-0027018

PATIENT
  Sex: Female
  Weight: 56.25 kg

DRUGS (8)
  1. LETAIRIS [Suspect]
     Indication: PULMONARY ARTERIAL HYPERTENSION
     Route: 048
     Dates: start: 20091214
  2. COUMADIN [Concomitant]
  3. ENALAPRIL [Concomitant]
  4. NIFEDIPINE [Concomitant]
  5. REGLAN [Concomitant]
  6. PRILOSEC [Concomitant]
  7. ALEVE [Concomitant]
  8. STOOL SOFTENER [Concomitant]

REACTIONS (3)
  - Rash [Unknown]
  - Swelling face [Unknown]
  - Pharyngeal oedema [Unknown]
